FAERS Safety Report 20517574 (Version 1)
Quarter: 2022Q1

REPORT INFORMATION
  Report Type: Spontaneous
  Country: US (occurrence: None)
  Receive Date: 20220224
  Receipt Date: 20220224
  Transmission Date: 20220423
  Serious: Yes (Life-Threatening, Other)
  Sender: FDA-Public Use
  Company Number: None

PATIENT
  Age: 75 Year
  Sex: Female
  Weight: 79 kg

DRUGS (1)
  1. ZERBAXA [Suspect]
     Active Substance: CEFTOLOZANE SULFATE\TAZOBACTAM SODIUM
     Indication: Pneumonia pseudomonal
     Dosage: FREQUENCY : 3 TIMES A DAY;?
     Route: 041
     Dates: start: 20220109, end: 20220222

REACTIONS (2)
  - Bacterial infection [None]
  - Pneumonia pseudomonal [None]

NARRATIVE: CASE EVENT DATE: 20220218
